FAERS Safety Report 19453491 (Version 6)
Quarter: 2021Q3

REPORT INFORMATION
  Report Type: Report from Study
  Country: CA (occurrence: CA)
  Receive Date: 20210623
  Receipt Date: 20210716
  Transmission Date: 20211014
  Serious: Yes (Other)
  Sender: FDA-Public Use
  Company Number: CA-BEH-2021133154

PATIENT
  Age: 63 Year
  Sex: Male
  Weight: 136.51 kg

DRUGS (7)
  1. HIZENTRA [Suspect]
     Active Substance: HUMAN IMMUNOGLOBULIN G
     Dosage: UNK, TOT
     Route: 065
     Dates: start: 20210709
  2. HIZENTRA [Suspect]
     Active Substance: HUMAN IMMUNOGLOBULIN G
     Dosage: UNK, TOT
     Route: 065
     Dates: start: 20210709
  3. HIZENTRA [Suspect]
     Active Substance: HUMAN IMMUNOGLOBULIN G
     Dosage: UNK
     Route: 058
     Dates: start: 20210324
  4. HIZENTRA [Suspect]
     Active Substance: HUMAN IMMUNOGLOBULIN G
     Dosage: 48 GRAM, QW
     Route: 058
     Dates: start: 20210324
  5. PERCOCET [Suspect]
     Active Substance: ACETAMINOPHEN\OXYCODONE HYDROCHLORIDE
  6. HIZENTRA [Suspect]
     Active Substance: HUMAN IMMUNOGLOBULIN G
     Indication: CHRONIC INFLAMMATORY DEMYELINATING POLYRADICULONEUROPATHY
     Dosage: 48 GRAM, QW
     Route: 058
     Dates: start: 20210324
  7. HIZENTRA [Suspect]
     Active Substance: HUMAN IMMUNOGLOBULIN G
     Dosage: UNK
     Route: 058
     Dates: start: 20210324

REACTIONS (18)
  - Withdrawal syndrome [Unknown]
  - Pain in extremity [Unknown]
  - Dyspnoea [Unknown]
  - Infusion site pain [Unknown]
  - Malaise [Unknown]
  - Burning sensation [Unknown]
  - Hyperhidrosis [Unknown]
  - Abdominal discomfort [Unknown]
  - Weight increased [Unknown]
  - Hypoaesthesia [Unknown]
  - Abdominal pain [Unknown]
  - Back pain [Unknown]
  - Discomfort [Unknown]
  - Dyspnoea exertional [Unknown]
  - Peripheral swelling [Unknown]
  - Paraesthesia [Unknown]
  - Intervertebral disc protrusion [Unknown]
  - Somnolence [Unknown]

NARRATIVE: CASE EVENT DATE: 20210709
